FAERS Safety Report 21677358 (Version 5)
Quarter: 2023Q1

REPORT INFORMATION
  Report Type: Spontaneous
  Country: CA (occurrence: CA)
  Receive Date: 20221203
  Receipt Date: 20230325
  Transmission Date: 20230418
  Serious: Yes (Other)
  Sender: FDA-Public Use
  Company Number: CA-CELLTRION INC.-2022CA008877

PATIENT

DRUGS (6)
  1. INFLECTRA [Suspect]
     Active Substance: INFLIXIMAB-DYYB
     Indication: Colitis ulcerative
     Dosage: 5 MG/KG ,WEEKS 0,2, 6, THEN Q8WEEKS
     Route: 042
     Dates: start: 20220428, end: 20220428
  2. INFLECTRA [Suspect]
     Active Substance: INFLIXIMAB-DYYB
     Dosage: 5 MG/KG ,WEEKS 0,2, 6, THEN Q8WEEKS
     Route: 042
     Dates: start: 20220804, end: 20220804
  3. INFLECTRA [Suspect]
     Active Substance: INFLIXIMAB-DYYB
     Dosage: 5 MG/KG ,WEEKS 0,2, 6, THEN Q8WEEKS
     Route: 042
     Dates: start: 20220929
  4. INFLECTRA [Suspect]
     Active Substance: INFLIXIMAB-DYYB
     Dosage: 5 MG/KG ,WEEKS 0,2, 6, THEN Q8WEEKS
     Route: 042
     Dates: start: 20221123
  5. INFLECTRA [Suspect]
     Active Substance: INFLIXIMAB-DYYB
     Dosage: 5 MG/KG ,WEEKS 0,2, 6, THEN Q8WEEKS
     Route: 042
     Dates: start: 20230119
  6. INFLECTRA [Suspect]
     Active Substance: INFLIXIMAB-DYYB
     Dosage: 5 MG/KG ,WEEKS 0,2, 6, THEN Q8WEEKS
     Route: 042
     Dates: start: 20230119

REACTIONS (6)
  - Condition aggravated [Recovering/Resolving]
  - Off label use [Unknown]
  - Intentional product use issue [Unknown]
  - Cough [Recovering/Resolving]
  - Suffocation feeling [Recovered/Resolved]
  - Pharyngeal paraesthesia [Not Recovered/Not Resolved]

NARRATIVE: CASE EVENT DATE: 20220428
